FAERS Safety Report 9184360 (Version 1)
Quarter: 2013Q1

REPORT INFORMATION
  Report Type: Spontaneous
  Country: US (occurrence: US)
  Receive Date: 20130322
  Receipt Date: 20130322
  Transmission Date: 20140127
  Serious: Yes (Hospitalization)
  Sender: FDA-Public Use
  Company Number: US-BAYER-2013-035128

PATIENT
  Age: 42 Year
  Sex: Female

DRUGS (7)
  1. YAZ [Suspect]
     Indication: MENORRHAGIA
  2. YASMIN [Suspect]
  3. OCELLA [Suspect]
  4. CITALOPRAM [Concomitant]
     Dosage: 20 MG, UNK
     Route: 048
     Dates: start: 20110527, end: 20110718
  5. AMOXICILLIN [Concomitant]
     Dosage: 500 MG, UNK
     Route: 048
     Dates: start: 20110527
  6. VITAMIN D2 [Concomitant]
     Dosage: 50000 U, UNK
     Route: 048
     Dates: start: 20110531
  7. VICODIN [Concomitant]

REACTIONS (1)
  - Pulmonary embolism [None]
